FAERS Safety Report 9352676 (Version 31)
Quarter: 2015Q3

REPORT INFORMATION
  Report Type: Report from Study
  Country: CA (occurrence: CA)
  Receive Date: 20130618
  Receipt Date: 20150824
  Transmission Date: 20151125
  Serious: Yes (Other)
  Sender: FDA-Public Use
  Company Number: CA-ROCHE-1237824

PATIENT
  Age: 61 Year
  Sex: Female
  Weight: 82 kg

DRUGS (9)
  1. ARIMIDEX [Concomitant]
     Active Substance: ANASTROZOLE
  2. CELEXA [Concomitant]
     Active Substance: CITALOPRAM HYDROBROMIDE
  3. METHOTREXATE [Concomitant]
     Active Substance: METHOTREXATE
  4. FISH OIL [Concomitant]
     Active Substance: FISH OIL
  5. ROSUVASTATIN [Concomitant]
     Active Substance: ROSUVASTATIN
  6. ACTEMRA [Suspect]
     Active Substance: TOCILIZUMAB
     Indication: RHEUMATOID ARTHRITIS
     Route: 042
     Dates: start: 20130419
  7. ACTEMRA [Suspect]
     Active Substance: TOCILIZUMAB
     Route: 042
     Dates: start: 20140801
  8. NORTRIPTYLINE [Concomitant]
     Active Substance: NORTRIPTYLINE
  9. VITAMIN B12 [Concomitant]
     Active Substance: CYANOCOBALAMIN

REACTIONS (20)
  - Headache [Recovered/Resolved]
  - Cystitis [Recovered/Resolved]
  - Fatigue [Unknown]
  - Localised infection [Recovered/Resolved]
  - Weight increased [Unknown]
  - Weight decreased [Not Recovered/Not Resolved]
  - Injection site bruising [Unknown]
  - Cellulitis [Recovered/Resolved]
  - Urinary tract infection [Recovered/Resolved]
  - Heart rate increased [Unknown]
  - Oxygen saturation decreased [Unknown]
  - Sepsis [Unknown]
  - Abdominal discomfort [Unknown]
  - Lymphoedema [Unknown]
  - Post procedural infection [Unknown]
  - Carpal tunnel syndrome [Not Recovered/Not Resolved]
  - Cataract [Unknown]
  - Infusion related reaction [Unknown]
  - Drug effect decreased [Unknown]
  - Blood pressure increased [Unknown]

NARRATIVE: CASE EVENT DATE: 20130608
